FAERS Safety Report 5998935-1 (Version None)
Quarter: 2008Q4

REPORT INFORMATION
  Report Type: 
  Country: None (occurrence: None)
  Receive Date: 20081213
  Receipt Date: 20080725
  Transmission Date: 20090506
  Serious: No
  Sender: FDA-Public Use
  Company Number: US-AMGEN-KDL297142

PATIENT
  Sex: Female

DRUGS (1)
  1. ENBREL [Suspect]
     Indication: ANKYLOSING SPONDYLITIS
     Route: 058
     Dates: start: 20030116

REACTIONS (5)
  - BLOOD PRESSURE INCREASED [None]
  - EAR INFECTION VIRAL [None]
  - HYPOAESTHESIA [None]
  - URINARY TRACT INFECTION [None]
  - VERTIGO [None]
